FAERS Safety Report 14410517 (Version 1)
Quarter: 2018Q1

REPORT INFORMATION
  Report Type: Spontaneous
  Country: ES (occurrence: ES)
  Receive Date: 20180119
  Receipt Date: 20180119
  Transmission Date: 20180509
  Serious: Yes (Hospitalization)
  Sender: FDA-Public Use
  Company Number: ES-HORIZON-PRE-0022-2018

PATIENT
  Age: 77 Year
  Sex: Male

DRUGS (2)
  1. ADIRO 100 MG COMPRIMIDOS GASTRORSISTENTES EFG [Interacting]
     Active Substance: ASPIRIN
     Indication: PRODUCT USED FOR UNKNOWN INDICATION
     Dosage: 100 MG, 1 COMPR/24H
     Route: 048
     Dates: start: 2005, end: 20171107
  2. PREDNISONE. [Suspect]
     Active Substance: PREDNISONE
     Indication: GLOMERULONEPHRITIS
     Dosage: 30 MG, 1 COMP/24H
     Route: 048
     Dates: start: 20170920, end: 20171107

REACTIONS (2)
  - Gastrointestinal ulcer haemorrhage [Recovered/Resolved]
  - Drug interaction [None]

NARRATIVE: CASE EVENT DATE: 20171101
